FAERS Safety Report 9233560 (Version 1)
Quarter: 2013Q1

REPORT INFORMATION
  Report Type: Spontaneous
  Country: US (occurrence: None)
  Receive Date: 20121031
  Receipt Date: 20121031
  Transmission Date: 20140127
  Serious: No
  Sender: FDA-Public Use
  Company Number: PHEH2012US014512

PATIENT
  Age: 53 Year
  Sex: Female

DRUGS (6)
  1. GILENYA (FTY)CAPSULE, 0.5MG [Suspect]
     Indication: MULTIPLE SCLEROSIS
     Route: 048
  2. ZOLPIDEM (ZOLPIDEM) [Concomitant]
  3. GABAPENTIN (GABAPENTIN) [Concomitant]
  4. NEXIUM (ESOMEPRAZOLE MAGNESIUM) [Concomitant]
  5. VITAMIN B12 (CYANOCOBALMIN)LOZENGE [Concomitant]
  6. VITAMIN B6 PYRIDOXINE HYDROCHLORIDE) [Concomitant]

REACTIONS (3)
  - Vomiting [None]
  - Dry mouth [None]
  - Headache [None]
